FAERS Safety Report 12650881 (Version 2)
Quarter: 2016Q3

REPORT INFORMATION
  Report Type: Spontaneous
  Country: US (occurrence: US)
  Receive Date: 20160815
  Receipt Date: 20160927
  Transmission Date: 20161109
  Serious: Yes (Other)
  Sender: FDA-Public Use
  Company Number: US-JAZZ-2016-US-004910

PATIENT
  Sex: Female

DRUGS (25)
  1. NUVIGIL [Concomitant]
     Active Substance: ARMODAFINIL
  2. XYREM [Suspect]
     Active Substance: SODIUM OXYBATE
     Dosage: DOSE ADJUSTMENTS
     Route: 048
  3. REMICADE [Concomitant]
     Active Substance: INFLIXIMAB
  4. SKELAXIN [Concomitant]
     Active Substance: METAXALONE
  5. MIDRIN [Concomitant]
     Active Substance: ACETAMINOPHEN\DICHLORALPHENAZONE\ISOMETHEPTENE
  6. XYREM [Suspect]
     Active Substance: SODIUM OXYBATE
     Indication: NARCOLEPSY
     Dosage: 2.25 G, BID
     Route: 048
     Dates: start: 201512, end: 201512
  7. FLUOXETINE [Concomitant]
     Active Substance: FLUOXETINE HYDROCHLORIDE
  8. XYREM [Suspect]
     Active Substance: SODIUM OXYBATE
     Dosage: 4.5 G, BID
     Route: 048
     Dates: start: 201601
  9. CALCIUM + VITAMIN D [Concomitant]
     Active Substance: CALCIUM\VITAMIN D
  10. FOLIC ACID. [Concomitant]
     Active Substance: FOLIC ACID
  11. NEXIUM [Concomitant]
     Active Substance: ESOMEPRAZOLE MAGNESIUM
  12. VAGIFEM [Concomitant]
     Active Substance: ESTRADIOL
  13. METHOTREXATE. [Concomitant]
     Active Substance: METHOTREXATE
  14. PEPCID [Concomitant]
     Active Substance: FAMOTIDINE
  15. RESTASIS [Concomitant]
     Active Substance: CYCLOSPORINE
  16. VITAMIN D [Concomitant]
     Active Substance: CHOLECALCIFEROL
  17. CEVIMELINE HCL [Concomitant]
     Active Substance: CEVIMELINE HYDROCHLORIDE
  18. FIORICET [Concomitant]
     Active Substance: ACETAMINOPHEN\BUTALBITAL\CAFFEINE
  19. AMERGE [Concomitant]
     Active Substance: NARATRIPTAN HYDROCHLORIDE
  20. FIORINAL [Concomitant]
     Active Substance: ASPIRIN\BUTALBITAL\CAFFEINE
  21. LUNESTA [Concomitant]
     Active Substance: ESZOPICLONE
  22. LYRICA [Concomitant]
     Active Substance: PREGABALIN
  23. MELATONIN [Concomitant]
     Active Substance: MELATONIN
  24. SUMATRIPTAN. [Concomitant]
     Active Substance: SUMATRIPTAN
  25. VALTREX [Concomitant]
     Active Substance: VALACYCLOVIR HYDROCHLORIDE

REACTIONS (5)
  - Migraine [Recovering/Resolving]
  - Neck pain [Not Recovered/Not Resolved]
  - Headache [Not Recovered/Not Resolved]
  - Drug ineffective [Unknown]
  - Unevaluable event [Not Recovered/Not Resolved]
